FAERS Safety Report 21739734 (Version 1)
Quarter: 2022Q4

REPORT INFORMATION
  Report Type: Report from Study
  Country: US (occurrence: US)
  Receive Date: 20221216
  Receipt Date: 20221216
  Transmission Date: 20230113
  Serious: No
  Sender: FDA-Public Use
  Company Number: US-ABBVIE-4239500

PATIENT
  Sex: Male

DRUGS (1)
  1. IMBRUVICA [Suspect]
     Active Substance: IBRUTINIB
     Indication: Chronic lymphocytic leukaemia
     Dosage: EVENT START DATE IS NOV-2022
     Route: 048
     Dates: start: 20221129

REACTIONS (3)
  - Urinary tract infection [Unknown]
  - White blood cell count increased [Unknown]
  - Malaise [Unknown]
